FAERS Safety Report 12125862 (Version 1)
Quarter: 2016Q1

REPORT INFORMATION
  Report Type: Spontaneous
  Country: US (occurrence: US)
  Receive Date: 20160229
  Receipt Date: 20160229
  Transmission Date: 20160526
  Serious: No
  Sender: FDA-Public Use
  Company Number: US-ABBVIE-15P-163-1474663-00

PATIENT
  Age: 55 Year
  Sex: Male

DRUGS (2)
  1. ANDROGEL 1% [Suspect]
     Active Substance: TESTOSTERONE
     Indication: BLOOD TESTOSTERONE DECREASED
     Dosage: 6 PUMPS DAILY
     Route: 061
     Dates: end: 2013
  2. ANDROGEL [Suspect]
     Active Substance: TESTOSTERONE
     Indication: BLOOD TESTOSTERONE DECREASED
     Dosage: 6 PUMPS DAILY (3 PUMPS PER SHOULDER), 121.5 MG
     Route: 061
     Dates: start: 2013

REACTIONS (2)
  - Application site rash [Not Recovered/Not Resolved]
  - Blood testosterone increased [Recovered/Resolved]

NARRATIVE: CASE EVENT DATE: 2013
